FAERS Safety Report 11596022 (Version 2)
Quarter: 2015Q4

REPORT INFORMATION
  Report Type: Spontaneous
  Country: DE (occurrence: DE)
  Receive Date: 20151006
  Receipt Date: 20151113
  Transmission Date: 20160304
  Serious: Yes (Other)
  Sender: FDA-Public Use
  Company Number: PHHY2015DE112672

PATIENT
  Age: 54 Year
  Sex: Male
  Weight: 95 kg

DRUGS (2)
  1. COSENTYX [Suspect]
     Active Substance: SECUKINUMAB
     Indication: PSORIASIS
     Dosage: 300 MG, QMO
     Route: 058
     Dates: start: 20150610, end: 20150831
  2. COSENTYX [Suspect]
     Active Substance: SECUKINUMAB
     Dosage: 300 MG, QMO
     Route: 058
     Dates: start: 20151014

REACTIONS (2)
  - Urticaria [Recovered/Resolved]
  - Lyme disease [Recovered/Resolved]

NARRATIVE: CASE EVENT DATE: 20150911
